FAERS Safety Report 16415172 (Version 1)
Quarter: 2019Q2

REPORT INFORMATION
  Report Type: Spontaneous
  Country: US (occurrence: US)
  Receive Date: 20190611
  Receipt Date: 20190611
  Transmission Date: 20190711
  Serious: No
  Sender: FDA-Public Use
  Company Number: US-PFIZER INC-2019238181

PATIENT
  Sex: Female

DRUGS (2)
  1. METHOTREXATE SODIUM. [Suspect]
     Active Substance: METHOTREXATE SODIUM
     Dosage: UNK
  2. CENTRUM ADULTS UNDER 50 [Suspect]
     Active Substance: MINERALS\VITAMINS
     Dosage: UNK
     Dates: start: 201905, end: 20190602

REACTIONS (2)
  - Urine abnormality [Unknown]
  - Dysphagia [Unknown]

NARRATIVE: CASE EVENT DATE: 201905
